FAERS Safety Report 13272415 (Version 1)
Quarter: 2017Q1

REPORT INFORMATION
  Report Type: Spontaneous
  Country: US (occurrence: US)
  Receive Date: 20170225
  Receipt Date: 20170225
  Transmission Date: 20170428
  Serious: Yes (Other)
  Sender: FDA-Public Use
  Company Number: None

PATIENT

DRUGS (1)
  1. RANEXA [Suspect]
     Active Substance: RANOLAZINE

REACTIONS (4)
  - Peripheral swelling [None]
  - Joint swelling [None]
  - Blood creatinine increased [None]
  - Dehydration [None]

NARRATIVE: CASE EVENT DATE: 20170215
